FAERS Safety Report 4836355-3 (Version None)
Quarter: 2005Q4

REPORT INFORMATION
  Report Type: 
  Country: None (occurrence: None)
  Receive Date: 20051123
  Receipt Date: 20051104
  Transmission Date: 20060501
  Serious: Yes (Life-Threatening)
  Sender: FDA-Public Use
  Company Number: JP-ROCHE-423398

PATIENT
  Age: 58 Year
  Sex: Male

DRUGS (8)
  1. NICARDIPINE HCL [Suspect]
     Indication: HYPERTENSION
     Dosage: SECOND INDICATION: AORTIC DISSECTION.  INFUSION RATES: 8MG/HR (17/OCT-18/OCT), 33MG/HR (19/OCT-20/O+
     Route: 042
     Dates: start: 20051017, end: 20051020
  2. NICARDIPINE HCL [Suspect]
     Dosage: INFUSION RATES: 3-10MG/HR (22/OCT-25/OCT), 15-17MG/HR (26/OCT), 17-20MG/HR (27/OCT-31/OCT).
     Route: 042
     Dates: start: 20051022, end: 20051031
  3. ARTIST [Suspect]
     Indication: HYPERTENSION
     Route: 048
     Dates: start: 20051018, end: 20051031
  4. AMLODIPINE BESYLATE [Suspect]
     Indication: HYPERTENSION
     Route: 048
     Dates: start: 20051017, end: 20051031
  5. ADALAT [Suspect]
     Indication: HYPERTENSION
     Route: 048
     Dates: start: 20051018, end: 20051031
  6. CALSLOT [Suspect]
     Indication: HYPERTENSION
     Route: 048
     Dates: start: 20051021, end: 20051031
  7. CARDENALIN [Suspect]
     Indication: HYPERTENSION
     Route: 048
     Dates: start: 20051021, end: 20051031
  8. HERBESSER [Suspect]
     Indication: HYPERTENSION
     Dosage: SECOND INDICATION: AORTIC DISSECTION. DOSE: 9MG PER HOUR.
     Route: 042
     Dates: start: 20051031, end: 20051031

REACTIONS (6)
  - BRADYCARDIA [None]
  - CARDIAC ARREST [None]
  - COMA [None]
  - DRUG INEFFECTIVE [None]
  - HYPONATRAEMIA [None]
  - PHLEBITIS [None]
